FAERS Safety Report 9890513 (Version 1)
Quarter: 2014Q1

REPORT INFORMATION
  Report Type: Spontaneous
  Country: GB (occurrence: GB)
  Receive Date: 20140212
  Receipt Date: 20140212
  Transmission Date: 20141002
  Serious: Yes (Other)
  Sender: FDA-Public Use
  Company Number: GB-ACCORD-021784

PATIENT
  Age: 79 Year
  Sex: Female

DRUGS (3)
  1. METHOTREXATE [Suspect]
     Indication: PRODUCT USED FOR UNKNOWN INDICATION
     Route: 048
  2. LIVIAL [Suspect]
     Indication: VULVOVAGINAL DRYNESS
     Dosage: GRADUALLY COME OFF LIVIAL.
     Route: 048
  3. VAGIFEM [Concomitant]

REACTIONS (24)
  - Body height decreased [Unknown]
  - Tooth loss [Not Recovered/Not Resolved]
  - Incorrect dose administered [Unknown]
  - General physical health deterioration [Not Recovered/Not Resolved]
  - Eating disorder [Unknown]
  - Limb discomfort [Unknown]
  - Headache [Unknown]
  - Hip arthroplasty [Recovered/Resolved]
  - Bone disorder [Unknown]
  - Adverse drug reaction [Unknown]
  - Spinal deformity [Unknown]
  - Feeling abnormal [Unknown]
  - Umbilical hernia [Unknown]
  - Temporal arteritis [Unknown]
  - Gingival recession [Not Recovered/Not Resolved]
  - Hyperkeratosis [Unknown]
  - Pain in extremity [Not Recovered/Not Resolved]
  - Myalgia [Not Recovered/Not Resolved]
  - Osteoarthritis [Not Recovered/Not Resolved]
  - Malaise [Unknown]
  - Gingival disorder [Unknown]
  - Knee arthroplasty [Recovered/Resolved]
  - Gait disturbance [Not Recovered/Not Resolved]
  - Resorption bone increased [Not Recovered/Not Resolved]
